FAERS Safety Report 12241269 (Version 2)
Quarter: 2016Q2

REPORT INFORMATION
  Report Type: Spontaneous
  Country: JP (occurrence: JP)
  Receive Date: 20160406
  Receipt Date: 20160505
  Transmission Date: 20160815
  Serious: Yes (Other)
  Sender: FDA-Public Use
  Company Number: JP-ROCHE-1737804

PATIENT
  Age: 6 Year
  Sex: Male

DRUGS (5)
  1. TAMIFLU [Suspect]
     Active Substance: OSELTAMIVIR PHOSPHATE
     Indication: INFLUENZA
     Route: 048
     Dates: start: 20160327, end: 20160328
  2. CARBOCISTEINE [Concomitant]
     Active Substance: CARBOCYSTEINE
     Dosage: DOSE INTERVAL UNCERTAINTY?SYRUP
     Route: 048
  3. CELESTAMINE (JAPAN) [Concomitant]
     Active Substance: BETAMETHASONE\DEXCHLORPHENIRAMINE MALEATE
     Dosage: DOSE INTERVAL UNCERTAINTY?SYRUP
     Route: 048
  4. PELEX (ACETAMINOPHEN/ANHYDROUS CAFFEINE/CHLORPHENIRAMINE MALEATE/SALIC [Concomitant]
     Dosage: DOSE INTERVAL UNCERTAINTY
     Route: 048
  5. ASVERIN (TIPEPIDINE HIBENZATE) [Concomitant]
     Active Substance: TIPEPIDINE HIBENZATE
     Dosage: DOSE INTERVAL UNCERTAINTY?SYRUP
     Route: 048

REACTIONS (3)
  - Bruxism [Unknown]
  - Abnormal behaviour [Recovered/Resolved]
  - Mental disorder [Recovered/Resolved]

NARRATIVE: CASE EVENT DATE: 20160327
